FAERS Safety Report 8926056 (Version 1)
Quarter: 2012Q4

REPORT INFORMATION
  Report Type: 
  Country: US (occurrence: US)
  Receive Date: 20121126
  Receipt Date: 20121126
  Transmission Date: 20130627
  Serious: Yes (Other)
  Sender: FDA-Public Use
  Company Number: US-ROXANE LABORATORIES, INC.-2012-RO-02435RO

PATIENT
  Age: 46 Year
  Sex: Female

DRUGS (3)
  1. LOSARTAN POTASSIUM USP [Suspect]
     Indication: HYPERTENSION
     Dosage: 100 mg
  2. PREDNISONE [Suspect]
     Indication: THYROIDITIS FIBROUS CHRONIC
     Dosage: 30 mg
  3. METFORMIN\SITAGLIPTIN [Suspect]
     Indication: DIABETES MELLITUS

REACTIONS (5)
  - Angioedema [Recovered/Resolved]
  - Diabetes mellitus [Unknown]
  - Pruritus [None]
  - Rash morbilliform [None]
  - Paraesthesia [None]
